FAERS Safety Report 23219486 (Version 1)
Quarter: 2023Q4

REPORT INFORMATION
  Report Type: Spontaneous
  Country: IS (occurrence: IS)
  Receive Date: 20231122
  Receipt Date: 20231122
  Transmission Date: 20240110
  Serious: Yes (Death, Hospitalization)
  Sender: FDA-Public Use
  Company Number: None

PATIENT
  Age: 52 Year
  Sex: Female

DRUGS (1)
  1. ENHERTU [Suspect]
     Active Substance: FAM-TRASTUZUMAB DERUXTECAN-NXKI
     Indication: Breast cancer
     Dosage: 5.4 MG/KG
     Route: 065
     Dates: start: 20230801

REACTIONS (3)
  - Thrombosis [Fatal]
  - Haemorrhage subcutaneous [Fatal]
  - Liver function test abnormal [Fatal]

NARRATIVE: CASE EVENT DATE: 20231025
